FAERS Safety Report 24291795 (Version 1)
Quarter: 2024Q3

REPORT INFORMATION
  Report Type: Spontaneous
  Country: NL (occurrence: NL)
  Receive Date: 20240906
  Receipt Date: 20240906
  Transmission Date: 20241017
  Serious: Yes (Hospitalization)
  Sender: ELI LILLY AND CO
  Company Number: NL-ELI_LILLY_AND_COMPANY-NL202408017347

PATIENT
  Age: 63 Year
  Sex: Male

DRUGS (1)
  1. SELPERCATINIB [Suspect]
     Active Substance: SELPERCATINIB
     Indication: Product used for unknown indication
     Dosage: 160 MG, BID
     Route: 048
     Dates: start: 20221117

REACTIONS (1)
  - Myiasis [Unknown]

NARRATIVE: CASE EVENT DATE: 20240825
